FAERS Safety Report 14312564 (Version 4)
Quarter: 2018Q4

REPORT INFORMATION
  Report Type: Spontaneous
  Country: US (occurrence: US)
  Receive Date: 20171221
  Receipt Date: 20181004
  Transmission Date: 20190204
  Serious: No
  Sender: FDA-Public Use
  Company Number: US-PFIZER INC-2017054926

PATIENT
  Age: 5 Year
  Sex: Male
  Weight: 28.12 kg

DRUGS (6)
  1. FLOVENT [Concomitant]
     Active Substance: FLUTICASONE PROPIONATE
     Indication: HYPERSENSITIVITY
     Dosage: 2 DF, 2X/DAY
     Route: 055
  2. GENOTROPIN [Suspect]
     Active Substance: SOMATROPIN
     Dosage: 0.2 MG, (ALTERNATING WITH 0.4MG EVERY DAY IN THE EVENING)
     Route: 030
  3. SINGULAIR [Concomitant]
     Active Substance: MONTELUKAST SODIUM
     Indication: HYPERSENSITIVITY
     Dosage: UNK UNK, 1X/DAY
     Route: 048
  4. GENOTROPIN [Suspect]
     Active Substance: SOMATROPIN
     Indication: GROWTH HORMONE DEFICIENCY
     Dosage: 0.4 MG, DAILY (IN THE EVENING)
     Route: 058
     Dates: start: 20150602
  5. ZYRTEC [Concomitant]
     Active Substance: CETIRIZINE HYDROCHLORIDE
     Indication: ASTHMA
     Dosage: UNK UNK, 1X/DAY
  6. GENOTROPIN [Suspect]
     Active Substance: SOMATROPIN
     Dosage: 0.4 MG, (ALTERNATING WITH 0.2MG EVERY DAY IN THE EVENING)
     Route: 030

REACTIONS (5)
  - Product dose omission [Unknown]
  - Device issue [Unknown]
  - Headache [Recovered/Resolved]
  - Device breakage [Unknown]
  - Product use issue [Unknown]

NARRATIVE: CASE EVENT DATE: 20170205
